FAERS Safety Report 9796106 (Version 1)
Quarter: 2014Q1

REPORT INFORMATION
  Report Type: Spontaneous
  Country: US (occurrence: US)
  Receive Date: 20140103
  Receipt Date: 20140103
  Transmission Date: 20141002
  Serious: Yes (Hospitalization, Disabling)
  Sender: FDA-Public Use
  Company Number: US-ENDO PHARMACEUTICALS INC.-HYDR20130020

PATIENT
  Sex: Female

DRUGS (1)
  1. HYDROCORTISONE TABLETS [Suspect]
     Indication: ADRENAL INSUFFICIENCY
     Dosage: UNK
     Route: 065

REACTIONS (1)
  - Adrenocortical insufficiency acute [Recovered/Resolved]
